FAERS Safety Report 5444380-7 (Version None)
Quarter: 2007Q3

REPORT INFORMATION
  Report Type: 
  Country: None (occurrence: None)
  Receive Date: 20070906
  Receipt Date: 20070829
  Transmission Date: 20080115
  Serious: Yes (Other)
  Sender: FDA-Public Use
  Company Number: PHBS2007NO14299

PATIENT
  Sex: Male

DRUGS (1)
  1. LEPONEX [Suspect]

REACTIONS (4)
  - INCONTINENCE [None]
  - PYELONEPHRITIS [None]
  - PYREXIA [None]
  - RENAL DISORDER [None]
